FAERS Safety Report 4920659-X (Version None)
Quarter: 2006Q1

REPORT INFORMATION
  Report Type: 
  Country: None (occurrence: None)
  Receive Date: 20060217
  Receipt Date: 20060209
  Transmission Date: 20060701
  Serious: Yes (Other)
  Sender: FDA-Public Use
  Company Number: S06-USA-00516-01

PATIENT

DRUGS (1)
  1. NAMENDA [Suspect]
     Indication: MIGRAINE

REACTIONS (1)
  - MANIA [None]
